FAERS Safety Report 9812064 (Version 1)
Quarter: 2014Q1

REPORT INFORMATION
  Report Type: Spontaneous
  Country: US (occurrence: US)
  Receive Date: 20140110
  Receipt Date: 20140110
  Transmission Date: 20141002
  Serious: Yes (Death)
  Sender: FDA-Public Use
  Company Number: US-ASTRAZENECA-2014SE01611

PATIENT
  Age: 44 Year
  Sex: Male

DRUGS (6)
  1. ATENOLOL [Suspect]
     Route: 065
  2. INSULIN [Suspect]
     Route: 065
  3. SALICYLATE [Suspect]
     Route: 065
  4. PRAVASTATIN [Suspect]
     Route: 065
  5. GEMFIBROZIL [Suspect]
     Route: 065
  6. AMLODIPINE [Suspect]
     Route: 065

REACTIONS (2)
  - Toxicity to various agents [Fatal]
  - Completed suicide [Fatal]
